FAERS Safety Report 8757874 (Version 1)
Quarter: 2012Q4

REPORT INFORMATION
  Report Type: Report from Study
  Country: VE (occurrence: VE)
  Receive Date: 20120828
  Receipt Date: 20120828
  Transmission Date: 20130627
  Serious: Yes (Hospitalization)
  Sender: FDA-Public Use
  Company Number: VE-SHIRE-ALL1-2012-03953

PATIENT
  Sex: Male

DRUGS (1)
  1. VELAGLUCERASE ALFA [Suspect]
     Indication: GAUCHER^S DISEASE
     Dosage: 60 IU/kg, Unknown
     Route: 041

REACTIONS (4)
  - Dyspnoea [Unknown]
  - Hypotension [Unknown]
  - Hypertension [Unknown]
  - Infusion related reaction [Unknown]
